FAERS Safety Report 4729924-2 (Version None)
Quarter: 2005Q3

REPORT INFORMATION
  Report Type: 
  Country: None (occurrence: None)
  Receive Date: 20050728
  Receipt Date: 20050716
  Transmission Date: 20060218
  Serious: Yes (Hospitalization)
  Sender: FDA-Public Use
  Company Number: 2005BI012477

PATIENT
  Age: 44 Year
  Sex: Female

DRUGS (10)
  1. AVONEX [Suspect]
     Indication: MULTIPLE SCLEROSIS
     Dosage: 30 UG;QW ; IM
     Route: 030
     Dates: start: 20050301
  2. BACLOFEN [Concomitant]
  3. CELEXA [Concomitant]
  4. ACCUPRIL [Concomitant]
  5. CENESTIN [Concomitant]
  6. TESTOSTERONE [Concomitant]
  7. PROMETHAZINE [Concomitant]
  8. ALBUTEROL [Concomitant]
  9. IBUPROFEN [Concomitant]
  10. TYLENOL (CAPLET) [Concomitant]

REACTIONS (1)
  - THYROID MASS [None]
